FAERS Safety Report 19926061 (Version 1)
Quarter: 2021Q4

REPORT INFORMATION
  Report Type: Spontaneous
  Country: GB (occurrence: GB)
  Receive Date: 20211006
  Receipt Date: 20211006
  Transmission Date: 20220303
  Serious: Yes (Life-Threatening)
  Sender: FDA-Public Use
  Company Number: None

PATIENT
  Age: 64 Year
  Sex: Female
  Weight: 50 kg

DRUGS (6)
  1. LAMOTRIGINE [Suspect]
     Active Substance: LAMOTRIGINE
     Indication: Epilepsy
     Dosage: 50 MILLIGRAM DAILY; FOR 2 WEEKS THEN 2 TWICE A DAY
     Route: 065
     Dates: start: 20210902, end: 20210920
  2. HYDROCORTISONE [Concomitant]
     Active Substance: HYDROCORTISONE
     Indication: Dermatitis atopic
     Dosage: 2 DOSAGE FORMS DAILY; APPLY AS NEEDED (MILD POTENCY STEROID)
     Dates: start: 20210917
  3. LANSOPRAZOLE [Concomitant]
     Active Substance: LANSOPRAZOLE
     Dosage: 1 DOSAGE FORMS DAILY; HALF AN HOUR BEFORE BREAKFAST
     Dates: start: 20210325
  4. LEVETIRACETAM [Concomitant]
     Active Substance: LEVETIRACETAM
     Dosage: 2 DOSAGE FORMS DAILY;
     Dates: start: 20210513, end: 20210727
  5. LORAZEPAM [Concomitant]
     Active Substance: LORAZEPAM
     Indication: Agitation
     Dosage: 1DF
     Dates: start: 20210325
  6. NITROFURANTOIN [Concomitant]
     Active Substance: NITROFURANTOIN
     Dosage: 2 DOSAGE FORMS DAILY; FOR 3 DAYS
     Dates: start: 20210826, end: 20210829

REACTIONS (2)
  - Stevens-Johnson syndrome [Unknown]
  - Blister [Recovering/Resolving]

NARRATIVE: CASE EVENT DATE: 20210902
